FAERS Safety Report 16956471 (Version 13)
Quarter: 2020Q4

REPORT INFORMATION
  Report Type: Report from Study
  Country: ES (occurrence: ES)
  Receive Date: 20191024
  Receipt Date: 20201214
  Transmission Date: 20210113
  Serious: Yes (Hospitalization)
  Sender: FDA-Public Use
  Company Number: ES-ROCHE-2421092

PATIENT
  Age: 50 Year
  Sex: Female
  Weight: 65.4 kg

DRUGS (23)
  1. ONDANSETRON [Concomitant]
     Active Substance: ONDANSETRON
     Dates: start: 20190918, end: 20190918
  2. RO6874281 (FAP IL2V MAB) [Suspect]
     Active Substance: SIMLUKAFUSP ALFA
     Indication: METASTATIC NEOPLASM
     Dosage: DATE OF MOST RECENT DOSE OF RO6874281 10 MG (TOTAL VOLUME 8.7 ML) PRIOR TO AE AND FIRST EPISODE OF S
     Route: 042
     Dates: start: 20190918
  3. DEXCHLORPHENIRAMINE [Concomitant]
     Active Substance: DEXCHLORPHENIRAMINE
     Dates: start: 20190918, end: 20190918
  4. DEXCHLORPHENIRAMINE [Concomitant]
     Active Substance: DEXCHLORPHENIRAMINE
     Dates: start: 20191027
  5. ONDANSETRON [Concomitant]
     Active Substance: ONDANSETRON
     Dates: start: 20191011, end: 20191028
  6. METOCLOPRAMIDE. [Concomitant]
     Active Substance: METOCLOPRAMIDE
     Dates: start: 201906
  7. LORAZEPAM. [Concomitant]
     Active Substance: LORAZEPAM
     Dates: start: 20191023
  8. MOVICOL [Concomitant]
     Active Substance: POLYETHYLENE GLYCOL 3350\POTASSIUM CHLORIDE\SODIUM BICARBONATE\SODIUM CHLORIDE
     Dates: start: 201906
  9. BROMAZEPAM [Concomitant]
     Active Substance: BROMAZEPAM
     Dates: start: 20191011
  10. PARACETAMOL [Concomitant]
     Active Substance: ACETAMINOPHEN
     Dates: start: 20190918, end: 20190918
  11. ENANTYUM [Concomitant]
     Active Substance: DEXKETOPROFEN TROMETAMOL
     Dates: start: 20190918, end: 20190918
  12. RANITIDINE. [Concomitant]
     Active Substance: RANITIDINE
     Dates: start: 20191023, end: 20191023
  13. INACID [INDOMETACIN] [Concomitant]
     Dates: start: 20190919, end: 20191028
  14. ATEZOLIZUMAB. [Suspect]
     Active Substance: ATEZOLIZUMAB
     Indication: METASTATIC NEOPLASM
     Dosage: DATE OF MOST RECENT DOSE OF ATEZOLIZUMAB PRIOR TO AE AND FIRST EPISODE OF SAE ONSET 18/SEP/2019 AT 1
     Route: 041
     Dates: start: 20190918
  15. PECFENT [Concomitant]
     Active Substance: FENTANYL CITRATE
     Indication: TUMOUR PAIN
     Dosage: 100 (UNIT NOT REPORTED)
     Dates: start: 201901
  16. ARCOXIA [Concomitant]
     Active Substance: ETORICOXIB
     Indication: TUMOUR PAIN
     Dates: start: 20190911
  17. RANITIDINE. [Concomitant]
     Active Substance: RANITIDINE
     Dates: start: 20190918, end: 20190918
  18. OMEPRAZOLE. [Concomitant]
     Active Substance: OMEPRAZOLE
     Dates: start: 201901
  19. DEXCHLORPHENIRAMINE [Concomitant]
     Active Substance: DEXCHLORPHENIRAMINE
     Dates: start: 20191023, end: 20191023
  20. PARACETAMOL [Concomitant]
     Active Substance: ACETAMINOPHEN
     Dates: start: 20191023, end: 20191023
  21. LORMETAZEPAM [Concomitant]
     Active Substance: LORMETAZEPAM
     Dates: start: 20191011, end: 20191023
  22. LORAZEPAM. [Concomitant]
     Active Substance: LORAZEPAM
     Indication: INSOMNIA
     Dates: start: 201901
  23. ONDANSETRON [Concomitant]
     Active Substance: ONDANSETRON
     Dates: start: 20191023, end: 20191023

REACTIONS (1)
  - Capillary leak syndrome [Recovered/Resolved]

NARRATIVE: CASE EVENT DATE: 20190920
